FAERS Safety Report 14278342 (Version 1)
Quarter: 2017Q4

REPORT INFORMATION
  Report Type: Spontaneous
  Country: PL (occurrence: PL)
  Receive Date: 20171211
  Receipt Date: 20171211
  Transmission Date: 20180321
  Serious: Yes (Life-Threatening, Hospitalization)
  Sender: FDA-Public Use
  Company Number: PL-OTSUKA-DJ20081200

PATIENT

DRUGS (3)
  1. ABILIFY [Suspect]
     Active Substance: ARIPIPRAZOLE
     Indication: SCHIZOPHRENIA
     Route: 048
     Dates: start: 20080330, end: 20080411
  2. RISPOLEPT [Suspect]
     Active Substance: RISPERIDONE
     Route: 065
     Dates: start: 20080302
  3. RELANIUM [Suspect]
     Active Substance: DIAZEPAM
     Route: 065
     Dates: start: 20080302

REACTIONS (1)
  - Electrocardiogram QT prolonged [Recovered/Resolved]

NARRATIVE: CASE EVENT DATE: 20080402
